FAERS Safety Report 9585846 (Version 2)
Quarter: 2014Q2

REPORT INFORMATION
  Report Type: Report from Study
  Country: AR (occurrence: AR)
  Receive Date: 20131003
  Receipt Date: 20140519
  Transmission Date: 20141212
  Serious: Yes (Other)
  Sender: FDA-Public Use
  Company Number: AR-ROCHE-1284431

PATIENT
  Age: 85 Year
  Sex: Male

DRUGS (2)
  1. RANIBIZUMAB [Suspect]
     Indication: MACULOPATHY
     Dosage: RIGHT EYE, 4 AMPOULES
     Route: 050
     Dates: start: 2011
  2. RANIBIZUMAB [Suspect]
     Route: 050
     Dates: end: 201307

REACTIONS (3)
  - Bronchitis [Recovering/Resolving]
  - Eye infection [Not Recovered/Not Resolved]
  - Visual acuity reduced [Unknown]
